FAERS Safety Report 21893108 (Version 1)
Quarter: 2023Q1

REPORT INFORMATION
  Report Type: Spontaneous
  Country: CA (occurrence: CA)
  Receive Date: 20230121
  Receipt Date: 20230121
  Transmission Date: 20230418
  Serious: Yes (Other)
  Sender: FDA-Public Use
  Company Number: CA-MSNLABS-2023MSNLIT00097

PATIENT

DRUGS (7)
  1. PACLITAXEL [Suspect]
     Active Substance: PACLITAXEL
     Indication: Paraneoplastic dermatomyositis
     Route: 065
  2. PHENYTOIN [Suspect]
     Active Substance: PHENYTOIN
     Indication: Partial seizures
     Route: 065
  3. METHYLPREDNISOLONE [Suspect]
     Active Substance: METHYLPREDNISOLONE
     Indication: Paraneoplastic dermatomyositis
     Dosage: HIGH DOSE
     Route: 065
  4. PREDNISONE [Suspect]
     Active Substance: PREDNISONE
     Indication: Paraneoplastic dermatomyositis
     Route: 048
  5. CARBOPLATIN [Suspect]
     Active Substance: CARBOPLATIN
     Indication: Paraneoplastic dermatomyositis
     Route: 065
  6. CEFAZOLIN [Concomitant]
     Active Substance: CEFAZOLIN
     Route: 065
  7. CARBAMAZEPINE [Concomitant]
     Active Substance: CARBAMAZEPINE
     Indication: Partial seizures
     Route: 065

REACTIONS (2)
  - Drug ineffective [Unknown]
  - Drug interaction [Unknown]
